FAERS Safety Report 16393485 (Version 1)
Quarter: 2019Q2

REPORT INFORMATION
  Report Type: Spontaneous
  Country: US (occurrence: US)
  Receive Date: 20190430
  Receipt Date: 20190430
  Transmission Date: 20190711
  Serious: No
  Sender: FDA-Public Use
  Company Number: None

PATIENT
  Age: 45 Year
  Sex: Female
  Weight: 104.33 kg

DRUGS (1)
  1. COSENTYX [Suspect]
     Active Substance: SECUKINUMAB
     Indication: PSORIASIS
     Dosage: INJECT 300MG (2 PENS) SUBCUTANEOUSLY EVERY WEEK  AT WEEKS 2, 3 AS DIRECTED
     Route: 058
     Dates: start: 201904

REACTIONS (4)
  - Hemiplegia [None]
  - Fungal infection [None]
  - Vaginal cyst [None]
  - Psoriasis [None]
